FAERS Safety Report 9154580 (Version 1)
Quarter: 2013Q1

REPORT INFORMATION
  Report Type: Spontaneous
  Country: BD (occurrence: BD)
  Receive Date: 20130311
  Receipt Date: 20130311
  Transmission Date: 20140127
  Serious: Yes (Death)
  Sender: FDA-Public Use
  Company Number: PHHY2013BD023063

PATIENT
  Age: 60 Year
  Sex: Female

DRUGS (1)
  1. SEBIVO [Suspect]
     Indication: HEPATITIS B
     Dosage: DAILY
     Route: 048
     Dates: start: 20110101, end: 20110401

REACTIONS (1)
  - Cerebrovascular accident [Fatal]
